FAERS Safety Report 5504287-3 (Version None)
Quarter: 2007Q4

REPORT INFORMATION
  Report Type: 
  Country: None (occurrence: None)
  Receive Date: 20071030
  Receipt Date: 20070720
  Transmission Date: 20080405
  Serious: Yes (Other)
  Sender: FDA-Public Use
  Company Number: HWYE210817JUL04

PATIENT
  Age: 48 Year
  Sex: Female
  Weight: 108.05 kg

DRUGS (3)
  1. PREMARIN [Suspect]
     Indication: ANXIETY
     Dosage: 1.25MG DAILY, ORAL
     Route: 048
     Dates: start: 19840301
  2. ESTRACE [Suspect]
     Indication: ANXIETY
     Dosage: ORAL
     Route: 048
     Dates: start: 19950601
  3. ESTRATEST [Suspect]
     Indication: ANXIETY
     Dates: start: 19830521, end: 19840301

REACTIONS (3)
  - BREAST CANCER [None]
  - DEPRESSION [None]
  - WEIGHT DECREASED [None]
